FAERS Safety Report 20886292 (Version 1)
Quarter: 2022Q2

REPORT INFORMATION
  Report Type: Spontaneous
  Country: JP (occurrence: JP)
  Receive Date: 20220527
  Receipt Date: 20220527
  Transmission Date: 20220720
  Serious: Yes (Other)
  Sender: FDA-Public Use
  Company Number: JP-SANOFI-AVENTIS-2011SA070927

PATIENT
  Age: 59 Year
  Sex: Male
  Weight: 62 kg

DRUGS (12)
  1. TAXOTERE [Suspect]
     Active Substance: DOCETAXEL
     Indication: Gingival cancer
     Dosage: 70 MG/M2, DAY1
     Route: 041
     Dates: start: 20101122, end: 20101122
  2. TAXOTERE [Suspect]
     Active Substance: DOCETAXEL
     Indication: Squamous cell carcinoma of the oral cavity
  3. CISPLATIN [Suspect]
     Active Substance: CISPLATIN
     Indication: Gingival cancer
     Dosage: 70 MG/M2, DAY1
     Route: 042
     Dates: start: 20101122, end: 20101122
  4. CISPLATIN [Suspect]
     Active Substance: CISPLATIN
     Indication: Squamous cell carcinoma of the oral cavity
  5. FLUOROURACIL [Suspect]
     Active Substance: FLUOROURACIL
     Indication: Gingival cancer
     Dosage: 700 MG/M2,  DAY1 TO 5
     Route: 042
     Dates: start: 20101122, end: 20101125
  6. FLUOROURACIL [Suspect]
     Active Substance: FLUOROURACIL
     Indication: Squamous cell carcinoma of the oral cavity
     Dosage: UNK
     Route: 042
     Dates: start: 2010
  7. DEXAMETHASONE SODIUM PHOSPHATE [Concomitant]
     Active Substance: DEXAMETHASONE SODIUM PHOSPHATE
     Indication: Prophylaxis
     Dosage: 9.9 MG, QD
     Route: 042
     Dates: start: 20101122, end: 20101125
  8. ALOXI [Concomitant]
     Active Substance: PALONOSETRON HYDROCHLORIDE
     Indication: Prophylaxis of nausea and vomiting
     Dosage: 0.75 MG, QD
     Route: 042
     Dates: start: 20101122, end: 20101122
  9. ALOXI [Concomitant]
     Active Substance: PALONOSETRON HYDROCHLORIDE
     Indication: Antiemetic supportive care
  10. GASTER [Concomitant]
     Active Substance: FAMOTIDINE
     Indication: Abdominal discomfort
     Dosage: 20 MG, QD
     Route: 042
     Dates: start: 20101122, end: 20101126
  11. LASIX [Concomitant]
     Active Substance: FUROSEMIDE
     Indication: Diuretic therapy
     Dosage: ONCE TO THREE TIMES PER DAY
     Route: 042
     Dates: start: 20101122, end: 20101122
  12. MANNITOL [Concomitant]
     Active Substance: MANNITOL
     Indication: Product used for unknown indication
     Route: 042
     Dates: start: 20101122, end: 20101122

REACTIONS (9)
  - Pulmonary embolism [Recovered/Resolved]
  - Chest pain [Recovered/Resolved]
  - Cold sweat [Recovered/Resolved]
  - Dyspnoea [Recovered/Resolved]
  - Atrial fibrillation [Recovered/Resolved]
  - Electrocardiogram ST segment elevation [Recovered/Resolved]
  - Tachycardia [Recovered/Resolved]
  - Blood pressure increased [Recovered/Resolved]
  - Malaise [Recovered/Resolved]

NARRATIVE: CASE EVENT DATE: 20101123
